FAERS Safety Report 7538381-2 (Version None)
Quarter: 2011Q2

REPORT INFORMATION
  Report Type: 
  Country: None (occurrence: None)
  Receive Date: 20110609
  Receipt Date: 20110603
  Transmission Date: 20111010
  Serious: Yes (Other)
  Sender: FDA-Public Use
  Company Number: US-PFIZER INC-2011121806

PATIENT
  Sex: Female
  Weight: 61.224 kg

DRUGS (26)
  1. EFFEXOR [Suspect]
     Dosage: UNK
     Dates: start: 20110403, end: 20110405
  2. PROPRANOLOL HYDROCHLORIDE [Concomitant]
     Indication: HYPERTENSION
  3. TIZANIDINE HYDROCHLORIDE [Concomitant]
     Indication: INJURY
     Dosage: 4 MG, 1 IN 8 HR
     Route: 048
  4. LORTAB [Concomitant]
     Indication: INJURY
     Dosage: 7/500 MG (1 IN 12 HR)
     Route: 048
  5. EFFEXOR [Suspect]
     Dosage: UNK
     Route: 048
     Dates: start: 20110301, end: 20110401
  6. TRAZODONE [Concomitant]
     Indication: INSOMNIA
     Route: 048
  7. FIORINAL-C 1/4 [Concomitant]
     Indication: MIGRAINE
     Dosage: 1 TABLET, 1 IN 1 D
     Route: 048
  8. TOPIRAMATE [Concomitant]
     Indication: HEADACHE
     Dosage: 100 MG, 1 IN 12 HR
     Route: 048
  9. CHLORAL HYDRATE [Concomitant]
     Indication: INSOMNIA
     Dosage: 500 MG, 1X/DAY
     Route: 048
  10. DOCUSATE SODIUM [Concomitant]
     Indication: CONSTIPATION
     Dosage: THRICE A DAY AS NEEDED
     Route: 048
  11. MYLANTA [Concomitant]
     Indication: DYSPEPSIA
     Dosage: 1 DF, AS NEEDED
     Route: 048
  12. CLONAZEPAM [Concomitant]
     Indication: INSOMNIA
     Route: 048
  13. CLONAZEPAM [Concomitant]
     Indication: ANXIETY
  14. ALPRAZOLAM [Concomitant]
     Indication: DEPRESSION
     Dosage: 1 MG, 3X/DAY
     Route: 048
  15. BUPROPION HYDROCHLORIDE [Concomitant]
     Indication: DEPRESSION
     Dosage: 150 MG, 1X/DAY
     Route: 048
  16. CYANOCOBALAMIN [Concomitant]
     Indication: ANAEMIA
     Dosage: 1 IN 1 M
     Route: 058
  17. PROPRANOLOL HYDROCHLORIDE [Concomitant]
     Indication: HEADACHE
     Dosage: 60 MG, 3X/DAY
     Route: 048
  18. METHYLPHENIDATE HYDROCHLORIDE [Concomitant]
     Dosage: (10 MG, 2 IN 1 D)
  19. ONDANSETRON [Concomitant]
     Indication: NAUSEA
     Dosage: 8 MG, TWICE DAILY AS NEEDED
     Route: 048
  20. HUMIRA [Suspect]
     Indication: CROHN'S DISEASE
     Dosage: 40 MG/0.8 ML PEN (1 IN 2 WK)
     Route: 058
     Dates: start: 20090301
  21. DICYCLOVERINE HYDROCHLORIDE [Concomitant]
     Indication: ABDOMINAL PAIN UPPER
     Dosage: 20 MG, AS NEEDED
     Route: 048
  22. SIMETICONE [Concomitant]
     Indication: IMPAIRED GASTRIC EMPTYING
     Dosage: 2 CAPSULES, 2 IN 1 DAY
     Route: 048
  23. METOCLOPRAMIDE [Concomitant]
     Indication: ABDOMINAL DISCOMFORT
     Dosage: 10 MG, BEFORE MEALS AND AT HOUR OF SLEEP
  24. DICYCLOVERINE HYDROCHLORIDE [Concomitant]
     Indication: IRRITABLE BOWEL SYNDROME
  25. DICYCLOVERINE HYDROCHLORIDE [Concomitant]
     Indication: IMPAIRED GASTRIC EMPTYING
  26. SENNOSIDE A+B [Concomitant]
     Indication: CONSTIPATION
     Dosage: 1 CAPSULE
     Route: 048

REACTIONS (7)
  - TOXICITY TO VARIOUS AGENTS [None]
  - CONVULSION [None]
  - HEART RATE IRREGULAR [None]
  - DYSARTHRIA [None]
  - BLOOD POTASSIUM DECREASED [None]
  - TREMOR [None]
  - HYPERTENSION [None]
